FAERS Safety Report 4745249-3 (Version None)
Quarter: 2005Q3

REPORT INFORMATION
  Report Type: 
  Country: None (occurrence: None)
  Receive Date: 20050812
  Receipt Date: 20050804
  Transmission Date: 20060218
  Serious: Yes (Life-Threatening, Hospitalization)
  Sender: FDA-Public Use
  Company Number: 200512427GDS

PATIENT
  Age: 41 Year
  Sex: Male
  Weight: 80 kg

DRUGS (2)
  1. NIMOTOP [Suspect]
     Indication: PERIPHERAL VASCULAR DISORDER
     Dosage: 90 MG, TOTAL DAILY, ORAL
     Route: 048
     Dates: start: 20040101, end: 20050528
  2. NEOSIDANTOINA                            (PHENYTOIN SODIUM) [Suspect]
     Indication: CONVULSION
     Dosage: 300 MG, TOTAL DAILY, ORAL
     Route: 048
     Dates: start: 20040101, end: 20050528

REACTIONS (1)
  - GRANULOCYTOPENIA [None]
